FAERS Safety Report 8020132-9 (Version None)
Quarter: 2012Q1

REPORT INFORMATION
  Report Type: 
  Country: None (occurrence: None)
  Receive Date: 20120103
  Receipt Date: 20111222
  Transmission Date: 20120608
  Serious: No
  Sender: FDA-Public Use
  Company Number: US-BAYER-2011-124325

PATIENT
  Age: 69 Year
  Sex: Male

DRUGS (7)
  1. LEVITRA [Suspect]
     Indication: ERECTILE DYSFUNCTION
     Dosage: 10 MG, UNK
     Route: 048
     Dates: start: 20060101, end: 20111216
  2. MULTIVITAMIN PREPARATION + MINERAL SUPPLEMENT [Concomitant]
  3. LISINOPRIL [Concomitant]
  4. TETRACYCLINE [Concomitant]
  5. HYDROCHLOROTHIAZIDE [Concomitant]
  6. FISH OIL [Concomitant]
  7. VITAMIN D [Concomitant]

REACTIONS (1)
  - ERECTILE DYSFUNCTION [None]
